FAERS Safety Report 6976615-3 (Version None)
Quarter: 2010Q3

REPORT INFORMATION
  Report Type: 
  Country: None (occurrence: None)
  Receive Date: 20100910
  Receipt Date: 20090506
  Transmission Date: 20110219
  Serious: No
  Sender: FDA-Public Use
  Company Number: US-WYE-H09240409

PATIENT
  Sex: Female

DRUGS (10)
  1. PRISTIQ [Suspect]
     Indication: DEPRESSION
     Route: 048
     Dates: start: 20090406
  2. ADDERALL 10 [Concomitant]
  3. ACIPHEX [Concomitant]
  4. THYROID TAB [Concomitant]
  5. POTASSIUM [Concomitant]
  6. LORAZEPAM [Concomitant]
  7. MORPHINE SULFATE [Concomitant]
  8. PERCOCET [Concomitant]
  9. COUMADIN [Concomitant]
  10. FUROSEMIDE [Concomitant]

REACTIONS (1)
  - MEDICATION RESIDUE [None]
